FAERS Safety Report 15022456 (Version 1)
Quarter: 2018Q2

REPORT INFORMATION
  Report Type: Spontaneous
  Country: US (occurrence: US)
  Receive Date: 20180601
  Receipt Date: 20180601
  Transmission Date: 20180711
  Serious: Yes (Life-Threatening, Hospitalization, Disabling, Other)
  Sender: FDA-Public Use
  Company Number: None

PATIENT
  Age: 46 Year
  Sex: Female
  Weight: 85.5 kg

DRUGS (1)
  1. XANAX XR [Suspect]
     Active Substance: ALPRAZOLAM
     Indication: ADRENAL DISORDER
     Dosage: ?          QUANTITY:3 DF DOSAGE FORM;?
     Route: 048

REACTIONS (13)
  - Cerebrovascular accident [None]
  - Panic disorder [None]
  - Abdominal distension [None]
  - Nervous system disorder [None]
  - Neuropathy peripheral [None]
  - Swelling [None]
  - Anxiety [None]
  - Withdrawal syndrome [None]
  - Suicide attempt [None]
  - Injury [None]
  - Tinnitus [None]
  - Tardive dyskinesia [None]
  - Dyskinesia [None]

NARRATIVE: CASE EVENT DATE: 20151019
